FAERS Safety Report 9406949 (Version 1)
Quarter: 2013Q3

REPORT INFORMATION
  Report Type: Spontaneous
  Country: US (occurrence: US)
  Receive Date: 20130718
  Receipt Date: 20130718
  Transmission Date: 20140515
  Serious: No
  Sender: FDA-Public Use
  Company Number: US-PFIZER INC-2013208825

PATIENT
  Age: 55 Year
  Sex: Female

DRUGS (1)
  1. INDERAL LA [Suspect]
     Dosage: 60 MG, DAILY IN THE EVENING
     Route: 048
     Dates: start: 201306

REACTIONS (1)
  - Insomnia [Not Recovered/Not Resolved]
